FAERS Safety Report 8407337-X (Version None)
Quarter: 2012Q2

REPORT INFORMATION
  Report Type: 
  Country: None (occurrence: None)
  Receive Date: 20120604
  Receipt Date: 20120525
  Transmission Date: 20120825
  Serious: Yes (Disabling)
  Sender: FDA-Public Use
  Company Number: JP-ASTRAZENECA-2012SE34391

PATIENT
  Age: 46 Year
  Sex: Male

DRUGS (1)
  1. MARCAINE HYDROCHLORIDE PRESERVATIVE FREE [Suspect]
     Indication: SPINAL ANAESTHESIA
     Route: 037
     Dates: start: 20120424

REACTIONS (1)
  - NERVOUS SYSTEM DISORDER [None]
